FAERS Safety Report 15439100 (Version 1)
Quarter: 2018Q3

REPORT INFORMATION
  Report Type: Spontaneous
  Country: US (occurrence: US)
  Receive Date: 20180924
  Receipt Date: 20180924
  Transmission Date: 20181010
  Serious: No
  Sender: FDA-Public Use
  Company Number: None

PATIENT
  Age: 73 Year
  Sex: Female
  Weight: 58.05 kg

DRUGS (16)
  1. LOSARTAN. [Concomitant]
     Active Substance: LOSARTAN
  2. EXCEDRIN TENSION [Concomitant]
  3. EXCEDRIN EXTRA STRENGTH [Concomitant]
     Active Substance: ACETAMINOPHEN\ASPIRIN\CAFFEINE
  4. CALCIUM [Concomitant]
     Active Substance: CALCIUM
  5. METOPROLOL SUCCINATE. [Concomitant]
     Active Substance: METOPROLOL SUCCINATE
  6. HYDROCODONE [Concomitant]
     Active Substance: HYDROCODONE
  7. XANAX [Concomitant]
     Active Substance: ALPRAZOLAM
  8. LEVOTHYROXINE. [Concomitant]
     Active Substance: LEVOTHYROXINE
  9. VITAMIN D [Concomitant]
     Active Substance: CHOLECALCIFEROL
  10. MELOXICAM. [Concomitant]
     Active Substance: MELOXICAM
  11. SILENOR [Suspect]
     Active Substance: DOXEPIN HYDROCHLORIDE
     Indication: INSOMNIA
     Dosage: ?          QUANTITY:30 DF DOSAGE FORM;?
     Route: 048
     Dates: start: 20180801, end: 20180811
  12. TRAXODNE [Concomitant]
  13. BIMATOPROST. [Concomitant]
     Active Substance: BIMATOPROST
  14. MULTI VIT [Concomitant]
  15. VIT B [Concomitant]
     Active Substance: VITAMIN B
  16. OTHER SUPPLEMENTS [Concomitant]

REACTIONS (5)
  - Verbal abuse [None]
  - Sleep-related eating disorder [None]
  - Personality change [None]
  - Somnambulism [None]
  - Abnormal behaviour [None]

NARRATIVE: CASE EVENT DATE: 20180811
